FAERS Safety Report 18075949 (Version 1)
Quarter: 2020Q3

REPORT INFORMATION
  Report Type: Spontaneous
  Country: US (occurrence: US)
  Receive Date: 20200727
  Receipt Date: 20200727
  Transmission Date: 20201103
  Serious: No
  Sender: FDA-Public Use
  Company Number: US-ABBVIE-20K-163-3440048-00

PATIENT
  Sex: Female

DRUGS (1)
  1. SYNTHROID [Suspect]
     Active Substance: LEVOTHYROXINE SODIUM
     Indication: PRODUCT USED FOR UNKNOWN INDICATION
     Route: 048

REACTIONS (10)
  - Body temperature decreased [Unknown]
  - Unevaluable event [Unknown]
  - Lethargy [Unknown]
  - Multi-organ disorder [Unknown]
  - Product complaint [Unknown]
  - Blood pressure decreased [Unknown]
  - Poor quality product administered [Unknown]
  - Heart rate decreased [Unknown]
  - Blood cholesterol increased [Unknown]
  - Weight increased [Unknown]
